FAERS Safety Report 18671187 (Version 3)
Quarter: 2021Q1

REPORT INFORMATION
  Report Type: Spontaneous
  Country: CN (occurrence: CN)
  Receive Date: 20201228
  Receipt Date: 20210122
  Transmission Date: 20210419
  Serious: Yes (Hospitalization)
  Sender: FDA-Public Use
  Company Number: CN-SA-2020SA368835

PATIENT
  Age: 54 Year
  Sex: Female

DRUGS (4)
  1. LANTUS SOLOSTAR [Suspect]
     Active Substance: INSULIN GLARGINE
     Dosage: ONE TIME, INJECTED TOO MUCH LANTUS SOLOSTAR (INSULIN GLARGINE INJECTION),
     Route: 065
  2. GANSULIN [Concomitant]
     Dosage: UNK
     Route: 065
  3. LANTUS [Concomitant]
     Active Substance: INSULIN GLARGINE
  4. LANTUS SOLOSTAR [Suspect]
     Active Substance: INSULIN GLARGINE
     Indication: DIABETES MELLITUS
     Dosage: 12 IU, QD
     Route: 065
     Dates: start: 2013

REACTIONS (5)
  - Blood glucose decreased [Recovering/Resolving]
  - Localised infection [Recovered/Resolved]
  - Extra dose administered [Recovering/Resolving]
  - Diabetic wound [Recovered/Resolved]
  - Blood glucose increased [Unknown]

NARRATIVE: CASE EVENT DATE: 20201204
